FAERS Safety Report 5077659-1 (Version None)
Quarter: 2006Q3

REPORT INFORMATION
  Report Type: 
  Country: None (occurrence: None)
  Receive Date: 20060725
  Receipt Date: 20060608
  Transmission Date: 20061208
  Serious: No
  Sender: FDA-Public Use
  Company Number: 200614056BWH

PATIENT
  Age: 57 Year
  Sex: Male
  Weight: 68.0396 kg

DRUGS (7)
  1. NEXAVAR [Suspect]
     Indication: METASTASES TO LUNG
     Dosage: 400 MG, BID, ORAL
     Route: 048
     Dates: start: 20060602
  2. NEXAVAR [Suspect]
     Indication: METASTASIS
     Dosage: 400 MG, BID, ORAL
     Route: 048
     Dates: start: 20060602
  3. NEXAVAR [Suspect]
     Indication: RENAL CANCER METASTATIC
     Dosage: 400 MG, BID, ORAL
     Route: 048
     Dates: start: 20060602
  4. ATENOLOL [Concomitant]
  5. HYDROCHLORIDE [Concomitant]
  6. PROZAC [Concomitant]
  7. OXYCODONE HCL [Concomitant]

REACTIONS (2)
  - ERYTHEMA [None]
  - PAIN OF SKIN [None]
